FAERS Safety Report 7760535-0 (Version None)
Quarter: 2011Q3

REPORT INFORMATION
  Report Type: 
  Country: None (occurrence: None)
  Receive Date: 20110919
  Receipt Date: 20110907
  Transmission Date: 20111222
  Serious: Yes (Hospitalization, Other)
  Sender: FDA-Public Use
  Company Number: US-ELI_LILLY_AND_COMPANY-US201109003562

PATIENT
  Sex: Female

DRUGS (2)
  1. EFFIENT [Suspect]
     Dosage: 10 MG, UNKNOWN
     Dates: start: 20110901
  2. EFFIENT [Suspect]
     Dosage: 60 MG, UNKNOWN
     Dates: start: 20110901

REACTIONS (1)
  - IN-STENT CORONARY ARTERY RESTENOSIS [None]
